FAERS Safety Report 23422246 (Version 1)
Quarter: 2024Q1

REPORT INFORMATION
  Report Type: Spontaneous
  Country: US (occurrence: US)
  Receive Date: 20240119
  Receipt Date: 20240119
  Transmission Date: 20240410
  Serious: No
  Sender: FDA-Public Use
  Company Number: US-BRISTOL-MYERS SQUIBB COMPANY-2024-009034

PATIENT
  Age: 21 Year
  Sex: Female
  Weight: 47.63 kg

DRUGS (1)
  1. ORENCIA [Suspect]
     Active Substance: ABATACEPT
     Indication: Juvenile idiopathic arthritis
     Dosage: DOSE : 125 MG;     FREQ : WEEKLY
     Route: 058

REACTIONS (1)
  - Product storage error [Unknown]
